FAERS Safety Report 6523015-6 (Version None)
Quarter: 2009Q4

REPORT INFORMATION
  Report Type: 
  Country: None (occurrence: None)
  Receive Date: 20091222
  Receipt Date: 20091206
  Transmission Date: 20100525
  Serious: Yes (Hospitalization)
  Sender: FDA-Public Use
  Company Number: 002647

PATIENT
  Age: 6 Year
  Sex: Male

DRUGS (1)
  1. LEVETIRACETAM [Suspect]
     Indication: DRUG USE FOR UNKNOWN INDICATION
     Dosage: 60 MG/KG QD

REACTIONS (2)
  - CSF MYELIN BASIC PROTEIN INCREASED [None]
  - OPTIC NEUROPATHY [None]
